FAERS Safety Report 7286712-3 (Version None)
Quarter: 2011Q1

REPORT INFORMATION
  Report Type: 
  Country: None (occurrence: None)
  Receive Date: 20110210
  Receipt Date: 20110203
  Transmission Date: 20110831
  Serious: Yes (Death, Hospitalization)
  Sender: FDA-Public Use
  Company Number: US-GILEAD-2011-0035686

PATIENT
  Sex: Male

DRUGS (3)
  1. LETAIRIS [Suspect]
  2. ADCIRCA [Concomitant]
     Indication: PULMONARY HYPERTENSION
     Dates: start: 20091228
  3. LETAIRIS [Suspect]
     Indication: PULMONARY HYPERTENSION
     Route: 048
     Dates: start: 20100322, end: 20110201

REACTIONS (2)
  - LUNG NEOPLASM MALIGNANT [None]
  - DYSPNOEA [None]
